FAERS Safety Report 13685286 (Version 4)
Quarter: 2017Q3

REPORT INFORMATION
  Report Type: Spontaneous
  Country: DE (occurrence: DE)
  Receive Date: 20170623
  Receipt Date: 20170802
  Transmission Date: 20171127
  Serious: Yes (Hospitalization, Disabling, Other)
  Sender: FDA-Public Use
  Company Number: DE-GLAXOSMITHKLINE-DE2017GSK096262

PATIENT
  Age: 85 Year
  Sex: Female
  Weight: 50 kg

DRUGS (1)
  1. OTRI-ALLERGIE HEUSCHNUPFENSPRAY [Suspect]
     Active Substance: BECLOMETHASONE DIPROPIONATE
     Indication: RHINITIS ALLERGIC
     Dosage: UNK, SINGLE
     Route: 045
     Dates: start: 20170328, end: 20170328

REACTIONS (6)
  - Thrombosis [Recovering/Resolving]
  - Deposit eye [Recovering/Resolving]
  - Retinal artery occlusion [Recovering/Resolving]
  - Visual acuity reduced [Recovering/Resolving]
  - Blindness unilateral [Recovering/Resolving]
  - Asthenopia [Unknown]

NARRATIVE: CASE EVENT DATE: 20170328
